FAERS Safety Report 11046927 (Version 3)
Quarter: 2015Q3

REPORT INFORMATION
  Report Type: Spontaneous
  Country: US (occurrence: US)
  Receive Date: 20150420
  Receipt Date: 20150807
  Transmission Date: 20151125
  Serious: Yes (Life-Threatening, Hospitalization)
  Sender: FDA-Public Use
  Company Number: US-BAYER-2015-141914

PATIENT
  Age: 27 Year
  Sex: Female
  Weight: 72.56 kg

DRUGS (11)
  1. LOESTRIN NOS [Concomitant]
     Active Substance: ETHINYL ESTRADIOL\NORETHINDRONE ACETATE
  2. LIDODERM [Concomitant]
     Active Substance: LIDOCAINE
  3. LIDOCAINE. [Concomitant]
     Active Substance: LIDOCAINE
  4. TRAMADOL. [Concomitant]
     Active Substance: TRAMADOL
  5. ZOLOFT [Concomitant]
     Active Substance: SERTRALINE HYDROCHLORIDE
     Dosage: 25 MG, UNK
  6. IMPLANON [Concomitant]
     Active Substance: ETONOGESTREL
  7. PREVACID [Concomitant]
     Active Substance: LANSOPRAZOLE
     Dosage: 30 MG, UNK
  8. FLONASE [Concomitant]
     Active Substance: FLUTICASONE PROPIONATE
     Dosage: 50 MCG
  9. MIRENA [Suspect]
     Active Substance: LEVONORGESTREL
     Indication: CONTRACEPTION
     Dosage: 20 MCG/24HR, CONT
     Route: 015
     Dates: start: 20130522, end: 20130919
  10. NORTRIPTYLINE [Concomitant]
     Active Substance: NORTRIPTYLINE
  11. TYLENOL WITH CODEIN [CODEINE PHOSPHATE,PARACETAMOL] [Concomitant]
     Dosage: 300-30 MG

REACTIONS (7)
  - General physical health deterioration [Recovered/Resolved]
  - Injury [Recovered/Resolved]
  - Uterine perforation [Recovered/Resolved]
  - Device issue [Recovered/Resolved]
  - Abdominal pain [Recovered/Resolved]
  - Infection [None]
  - Pain [Recovered/Resolved]

NARRATIVE: CASE EVENT DATE: 201308
